FAERS Safety Report 8401337-1 (Version None)
Quarter: 2012Q2

REPORT INFORMATION
  Report Type: 
  Country: None (occurrence: None)
  Receive Date: 20120529
  Receipt Date: 20120516
  Transmission Date: 20120825
  Serious: Yes (Death)
  Sender: FDA-Public Use
  Company Number: 2012AT000229

PATIENT
  Age: 78 Year
  Sex: Male

DRUGS (8)
  1. DABIGATRAN (DABIGATRAN) [Suspect]
     Indication: PRODUCT USED FOR UNKNOWN INDICATION
     Dosage: 110 MG, BID
  2. DALTEPARIN SODIUM [Suspect]
     Indication: PRODUCT USED FOR UNKNOWN INDICATION
     Dosage: 5000 IU, BID
  3. MARCUMAR [Concomitant]
  4. DIGOXIN [Concomitant]
  5. ENALAPRIL MALEATE [Concomitant]
  6. ENOXAPARIN [Concomitant]
  7. HYDROCHLOROTHIAZDE TAB [Concomitant]
  8. ALPROSTADIL [Suspect]
     Indication: PRODUCT USED FOR UNKNOWN INDICATION
     Dosage: 40 UG

REACTIONS (17)
  - HYPOTONIA [None]
  - BASILAR ARTERY OCCLUSION [None]
  - GAMMA-GLUTAMYLTRANSFERASE INCREASED [None]
  - INTERNATIONAL NORMALISED RATIO DECREASED [None]
  - HAEMOGLOBIN DECREASED [None]
  - MYOCLONUS [None]
  - AUTOMATISM [None]
  - PAIN IN EXTREMITY [None]
  - BLOOD PRESSURE SYSTOLIC INCREASED [None]
  - HYPOREFLEXIA [None]
  - COMA [None]
  - WHITE BLOOD CELL COUNT INCREASED [None]
  - C-REACTIVE PROTEIN INCREASED [None]
  - ASPARTATE AMINOTRANSFERASE INCREASED [None]
  - PALLOR [None]
  - PROTHROMBIN TIME PROLONGED [None]
  - FIBRIN D DIMER INCREASED [None]
